FAERS Safety Report 7125982-9 (Version None)
Quarter: 2010Q4

REPORT INFORMATION
  Report Type: 
  Country: None (occurrence: None)
  Receive Date: 20101129
  Receipt Date: 20101118
  Transmission Date: 20110411
  Serious: Yes (Life-Threatening, Hospitalization)
  Sender: FDA-Public Use
  Company Number: FR-ROCHE-743116

PATIENT
  Age: 43 Year
  Sex: Male

DRUGS (4)
  1. VALIUM [Suspect]
     Dosage: ONE DOSE IN MORNING AND ONE DOSE IN EVENING
     Route: 048
  2. NOCTAMIDE [Suspect]
     Indication: INSOMNIA
     Dosage: ONE DOSE IN EVENING
     Route: 048
  3. DEPAMIDE [Concomitant]
     Dosage: 2 IN MORNING, 1 IN AFTERNOON AND 2 IN EVENING
  4. ZYPREXA [Concomitant]
     Dosage: ONE DOSE IN EVENING

REACTIONS (1)
  - CARDIO-RESPIRATORY ARREST [None]
